FAERS Safety Report 8120359-1 (Version None)
Quarter: 2012Q1

REPORT INFORMATION
  Report Type: 
  Country: None (occurrence: None)
  Receive Date: 20120207
  Receipt Date: 20120202
  Transmission Date: 20120608
  Serious: Yes (Death, Hospitalization)
  Sender: FDA-Public Use
  Company Number: US-GLAXOSMITHKLINE-B0724051A

PATIENT
  Age: 56 Year
  Sex: Male
  Weight: 90.9 kg

DRUGS (11)
  1. AVANDIA [Suspect]
     Indication: DIABETES MELLITUS
     Dosage: 8MG PER DAY
     Route: 048
     Dates: start: 19991201, end: 20020318
  2. TRICOR [Concomitant]
  3. GLUCOPHAGE [Concomitant]
  4. VERAPAMIL [Concomitant]
  5. LEVOTHYROXINE SODIUM [Concomitant]
  6. TRICOR [Concomitant]
  7. LOTENSIN [Concomitant]
  8. WELLBUTRIN SR [Concomitant]
  9. PRAVACHOL [Concomitant]
  10. VIAGRA [Concomitant]
  11. GLIPIZIDE [Concomitant]

REACTIONS (2)
  - CORONARY ARTERY DISEASE [None]
  - ACUTE MYOCARDIAL INFARCTION [None]
